FAERS Safety Report 12277369 (Version 1)
Quarter: 2016Q2

REPORT INFORMATION
  Report Type: Spontaneous
  Country: HR (occurrence: HR)
  Receive Date: 20160418
  Receipt Date: 20160418
  Transmission Date: 20160815
  Serious: Yes (Other)
  Sender: FDA-Public Use
  Company Number: HR-B.I. PHARMACEUTICALS,INC./RIDGEFIELD-2016-BI-22312HR

PATIENT
  Age: 68 Year
  Sex: Male
  Weight: 80 kg

DRUGS (2)
  1. FOSTER [Concomitant]
     Active Substance: BECLOMETHASONE\FORMOTEROL
     Indication: ASTHMA
     Dosage: 4 ANZ
     Route: 065
  2. SPIRIVA RESPIMAT [Suspect]
     Active Substance: TIOTROPIUM BROMIDE
     Indication: CHRONIC OBSTRUCTIVE PULMONARY DISEASE
     Dosage: 5 MCG
     Route: 055
     Dates: start: 20160225, end: 20160229

REACTIONS (3)
  - Dysphonia [Unknown]
  - Urinary retention [Unknown]
  - Tracheitis [Unknown]

NARRATIVE: CASE EVENT DATE: 20160229
